FAERS Safety Report 24778766 (Version 1)
Quarter: 2024Q4

REPORT INFORMATION
  Report Type: Spontaneous
  Country: IL (occurrence: IL)
  Receive Date: 20241226
  Receipt Date: 20241226
  Transmission Date: 20250114
  Serious: Yes (Other)
  Sender: MYLAN
  Company Number: IL-MYLANLABS-2024M1116056

PATIENT
  Age: 76 Year
  Sex: Male

DRUGS (5)
  1. EPLERENONE [Suspect]
     Active Substance: EPLERENONE
     Indication: Essential hypertension
     Dosage: 25 MILLIGRAM, QD
     Route: 065
  2. VALSARTAN [Suspect]
     Active Substance: VALSARTAN
     Indication: Essential hypertension
     Dosage: 320 MILLIGRAM, QD
     Route: 065
  3. HYDROCHLOROTHIAZIDE [Suspect]
     Active Substance: HYDROCHLOROTHIAZIDE
     Indication: Essential hypertension
     Dosage: 25 MILLIGRAM, QD
     Route: 065
  4. BISOPROLOL [Suspect]
     Active Substance: BISOPROLOL
     Indication: Essential hypertension
     Dosage: 10 MILLIGRAM, QD
     Route: 065
  5. METFORMIN [Concomitant]
     Active Substance: METFORMIN HYDROCHLORIDE
     Indication: Glucose tolerance impaired
     Dosage: UNK
     Route: 065

REACTIONS (1)
  - Drug ineffective [Unknown]
